FAERS Safety Report 4755115-5 (Version None)
Quarter: 2005Q3

REPORT INFORMATION
  Report Type: 
  Country: None (occurrence: None)
  Receive Date: 20050829
  Receipt Date: 20050823
  Transmission Date: 20060218
  Serious: Yes (Other)
  Sender: FDA-Public Use
  Company Number: US-JNJFOC-20050805146

PATIENT
  Sex: Female
  Weight: 57.61 kg

DRUGS (6)
  1. REMICADE [Suspect]
     Route: 042
  2. REMICADE [Suspect]
     Route: 042
  3. REMICADE [Suspect]
     Route: 042
  4. REMICADE [Suspect]
     Indication: CROHN'S DISEASE
     Route: 042
  5. IMURAN [Concomitant]
  6. ASACOL [Concomitant]
     Dosage: 400 MG, 2 TABLETS, 3 IN 1 DAY

REACTIONS (1)
  - HAEMANGIOMA OF LIVER [None]
